FAERS Safety Report 25233322 (Version 2)
Quarter: 2025Q2

REPORT INFORMATION
  Report Type: Spontaneous
  Country: PT (occurrence: PT)
  Receive Date: 20250424
  Receipt Date: 20250606
  Transmission Date: 20250716
  Serious: Yes (Other)
  Sender: MERCK SHARP & DOHME LLC
  Company Number: None

PATIENT
  Age: 74 Year
  Sex: Female

DRUGS (4)
  1. KEYTRUDA [Suspect]
     Active Substance: PEMBROLIZUMAB
     Indication: Colon cancer stage IV
     Dosage: 21/21 DAYS
     Route: 042
     Dates: start: 20230908
  2. CIPRALEX [Concomitant]
     Active Substance: ESCITALOPRAM OXALATE
  3. CYANOCOBALAMIN [Concomitant]
     Active Substance: CYANOCOBALAMIN
  4. BROMAZEPAM [Concomitant]
     Active Substance: BROMAZEPAM

REACTIONS (1)
  - Central hypothyroidism [Not Recovered/Not Resolved]

NARRATIVE: CASE EVENT DATE: 20241223
